FAERS Safety Report 4538342-1 (Version None)
Quarter: 2004Q4

REPORT INFORMATION
  Report Type: 
  Country: None (occurrence: None)
  Receive Date: 20041223
  Receipt Date: 20040617
  Transmission Date: 20050328
  Serious: No
  Sender: FDA-Public Use
  Company Number: 1087

PATIENT
  Age: 71 Year
  Sex: Female
  Weight: 54.4316 kg

DRUGS (3)
  1. AZATHIOPRINE [Suspect]
     Indication: AUTOIMMUNE HEPATITIS
     Dosage: 50 MG DAILY/ PO
     Route: 048
     Dates: start: 20040301, end: 20040501
  2. PREDNISONE [Concomitant]
  3. CALCIUM GLUCONATE [Concomitant]

REACTIONS (2)
  - NAUSEA [None]
  - VOMITING [None]
